FAERS Safety Report 4699054-7 (Version None)
Quarter: 2005Q2

REPORT INFORMATION
  Report Type: 
  Country: None (occurrence: None)
  Receive Date: 20050624
  Receipt Date: 20050524
  Transmission Date: 20051028
  Serious: Yes (Other)
  Sender: FDA-Public Use
  Company Number: PHEH2005US05928

PATIENT
  Age: 79 Year
  Sex: Male
  Weight: 73 kg

DRUGS (4)
  1. LAMISIL [Suspect]
     Indication: NAIL TINEA
     Dosage: 250 MG, QD
     Route: 048
     Dates: start: 20050307, end: 20050518
  2. ALDARA [Concomitant]
     Indication: ACTINIC KERATOSIS
     Dosage: UNK, UNK
     Route: 061
     Dates: start: 20050306, end: 20050326
  3. VITAMINS [Concomitant]
  4. ASPIRIN [Concomitant]

REACTIONS (1)
  - FREE PROSTATE-SPECIFIC ANTIGEN INCREASED [None]
